FAERS Safety Report 8254570-6 (Version None)
Quarter: 2012Q2

REPORT INFORMATION
  Report Type: 
  Country: None (occurrence: None)
  Receive Date: 20120403
  Receipt Date: 20120328
  Transmission Date: 20120825
  Serious: No
  Sender: FDA-Public Use
  Company Number: US-BIOGENIDEC-2012BI011079

PATIENT
  Sex: Male

DRUGS (5)
  1. AVONEX [Suspect]
     Route: 030
     Dates: start: 20030320
  2. ASPIRIN [Concomitant]
     Indication: PREMEDICATION
     Route: 048
     Dates: start: 20110101
  3. TYLENOL [Concomitant]
     Indication: PREMEDICATION
     Route: 048
     Dates: start: 20110101
  4. MEDICATION (NOS) [Concomitant]
     Indication: GASTROOESOPHAGEAL REFLUX DISEASE
  5. AVONEX [Suspect]
     Indication: MULTIPLE SCLEROSIS
     Route: 030

REACTIONS (9)
  - CEREBRAL ATROPHY [None]
  - THROAT TIGHTNESS [None]
  - DYSARTHRIA [None]
  - INFLUENZA LIKE ILLNESS [None]
  - ASTHENIA [None]
  - FATIGUE [None]
  - MOBILITY DECREASED [None]
  - EYELID PTOSIS [None]
  - VIITH NERVE PARALYSIS [None]
